FAERS Safety Report 16547972 (Version 3)
Quarter: 2019Q3

REPORT INFORMATION
  Report Type: Spontaneous
  Country: US (occurrence: US)
  Receive Date: 20190709
  Receipt Date: 20190916
  Transmission Date: 20191004
  Serious: Yes (Other)
  Sender: FDA-Public Use
  Company Number: US-ASTELLAS-2019US015294

PATIENT
  Age: 68 Year
  Sex: Female

DRUGS (1)
  1. MYRBETRIQ [Suspect]
     Active Substance: MIRABEGRON
     Indication: HYPERTONIC BLADDER
     Route: 048
     Dates: start: 201904

REACTIONS (3)
  - Sinusitis [Recovered/Resolved]
  - Epstein-Barr virus infection [Recovered/Resolved]
  - Klebsiella test positive [Unknown]

NARRATIVE: CASE EVENT DATE: 201904
